FAERS Safety Report 4745602-8 (Version None)
Quarter: 2005Q3

REPORT INFORMATION
  Report Type: 
  Country: None (occurrence: None)
  Receive Date: 20050815
  Receipt Date: 20050730
  Transmission Date: 20060218
  Serious: Yes (Other)
  Sender: FDA-Public Use
  Company Number: 2005059087

PATIENT
  Age: 86 Year
  Sex: Female
  Weight: 60.3284 kg

DRUGS (8)
  1. MACUGEN [Suspect]
     Indication: MACULAR DEGENERATION
     Dosage: 0.3 MG (0.3 MG, 1 IN 6 WK), INTRAOCULAR
     Route: 031
     Dates: start: 20050330, end: 20050330
  2. OCUVITE (ASCORBIC ACID, RETINOL, TOCOPHEROL) [Concomitant]
  3. ISOSORBIDE (ISOSORBIDE) [Concomitant]
  4. NORVASC [Concomitant]
  5. METOPROLOL TARTRATE [Concomitant]
  6. BAYER CHILDREN'S ASPIRIN (ACETYLSALICYCLIC AICD) [Concomitant]
  7. AMBIEN [Concomitant]
  8. NAPROXEN [Concomitant]

REACTIONS (7)
  - ANGIOGRAM RETINA ABNORMAL [None]
  - BLINDNESS UNILATERAL [None]
  - DISEASE PROGRESSION [None]
  - MACULAR DEGENERATION [None]
  - RETINAL HAEMORRHAGE [None]
  - VISUAL ACUITY REDUCED [None]
  - VITREOUS FLOATERS [None]
